FAERS Safety Report 8179284-2 (Version None)
Quarter: 2012Q1

REPORT INFORMATION
  Report Type: 
  Country: None (occurrence: None)
  Receive Date: 20120229
  Receipt Date: 20120229
  Transmission Date: 20120608
  Serious: No
  Sender: FDA-Public Use
  Company Number: None

PATIENT
  Sex: Female
  Weight: 49.8957 kg

DRUGS (1)
  1. OXYBUTYNIN CHLORIDE [Suspect]
     Indication: POLLAKIURIA
     Dosage: 1 TAB 3X DAY 5MG.
     Dates: start: 20111222, end: 20111225

REACTIONS (14)
  - SWOLLEN TONGUE [None]
  - MALAISE [None]
  - PRODUCT QUALITY ISSUE [None]
  - AGEUSIA [None]
  - ASTHENIA [None]
  - DRUG INEFFECTIVE [None]
  - OEDEMA MOUTH [None]
  - DYSPHAGIA [None]
  - LIP SWELLING [None]
  - HEADACHE [None]
  - CERUMEN IMPACTION [None]
  - TONGUE DISORDER [None]
  - PAIN [None]
  - DECREASED APPETITE [None]
